FAERS Safety Report 9251356 (Version 1)
Quarter: 2013Q1

REPORT INFORMATION
  Report Type: Spontaneous
  Country: US (occurrence: None)
  Receive Date: 20130305
  Receipt Date: 20130305
  Transmission Date: 20140127
  Serious: Yes (Other)
  Sender: FDA-Public Use
  Company Number: 163-21880-12082034

PATIENT
  Age: 71 Year
  Sex: Male

DRUGS (2)
  1. REVLIMID [Suspect]
     Indication: PLASMA CELL MYELOMA
     Dosage: 21 IN 21 D?02/17/2012 - TEMPORARILY INTERRUPTED
     Route: 048
     Dates: start: 20120217
  2. CELEBREX(CELECOXIB)(UNKNOWN) [Concomitant]

REACTIONS (1)
  - Hypoaesthesia [None]
